FAERS Safety Report 23934022 (Version 1)
Quarter: 2024Q2

REPORT INFORMATION
  Report Type: Spontaneous
  Country: US (occurrence: US)
  Receive Date: 20240603
  Receipt Date: 20240603
  Transmission Date: 20240716
  Serious: No
  Sender: FDA-Public Use
  Company Number: US-BIOGEN-2023BI01237209

PATIENT
  Age: 52 Year
  Sex: Female

DRUGS (2)
  1. VUMERITY [Suspect]
     Active Substance: DIROXIMEL FUMARATE
     Indication: Multiple sclerosis
     Dosage: STARTED WITH 231MG BY MOUTH TWO TIMES A DAY FOR 7 DAYS
     Route: 050
     Dates: start: 20231016
  2. VUMERITY [Suspect]
     Active Substance: DIROXIMEL FUMARATE
     Dosage: THEN STARTED TWO CAPSULES (462MG) BY MOUTH TWO TIMES A DAY THEREAFTER
     Route: 050
     Dates: start: 20231113, end: 20240501

REACTIONS (2)
  - Off label use [Recovered/Resolved]
  - Abdominal discomfort [Recovered/Resolved]

NARRATIVE: CASE EVENT DATE: 20231106
